FAERS Safety Report 21959129 (Version 2)
Quarter: 2023Q1

REPORT INFORMATION
  Report Type: Spontaneous
  Country: US (occurrence: None)
  Receive Date: 20230206
  Receipt Date: 20230220
  Transmission Date: 20230418
  Serious: Yes (Life-Threatening, Hospitalization, Other)
  Sender: FDA-Public Use
  Company Number: 2023A028017

PATIENT
  Age: 28396 Day
  Sex: Male

DRUGS (4)
  1. BRILINTA [Suspect]
     Active Substance: TICAGRELOR
     Indication: Coronary artery disease
     Dosage: 180 MG180.0MG ONCE/SINGLE ADMINISTRATION
     Route: 048
  2. ASPIRIN [Concomitant]
     Active Substance: ASPIRIN
     Dosage: 320 UNK
  3. ATROPINE [Concomitant]
     Active Substance: ATROPINE
  4. CLOPIDOGRIL [Concomitant]

REACTIONS (3)
  - Sinus arrest [Recovered/Resolved]
  - Catheterisation cardiac abnormal [Unknown]
  - Off label use [Unknown]

NARRATIVE: CASE EVENT DATE: 20230131
